FAERS Safety Report 15007466 (Version 1)
Quarter: 2018Q2

REPORT INFORMATION
  Report Type: Report from Study
  Country: CN (occurrence: CN)
  Receive Date: 20180613
  Receipt Date: 20180613
  Transmission Date: 20180711
  Serious: Yes (Hospitalization)
  Sender: FDA-Public Use
  Company Number: CN-ASTRAZENECA-2018SE74240

PATIENT
  Age: 18698 Day
  Sex: Male

DRUGS (9)
  1. MEDI4736 [Suspect]
     Active Substance: DURVALUMAB
     Indication: NON-SMALL CELL LUNG CANCER
     Route: 042
     Dates: start: 20180112, end: 20180112
  2. MEDI4736 [Suspect]
     Active Substance: DURVALUMAB
     Indication: NON-SMALL CELL LUNG CANCER
     Route: 042
     Dates: start: 20180209, end: 20180209
  3. CODEINE PHOSPHATE [Concomitant]
     Active Substance: CODEINE PHOSPHATE
     Indication: MALIGNANT ASCITES
     Dosage: 426 MG
     Route: 048
     Dates: start: 20180110
  4. ESTAZOLAM. [Concomitant]
     Active Substance: ESTAZOLAM
     Indication: POOR QUALITY SLEEP
     Dosage: 1 MG
     Route: 048
     Dates: start: 20180504
  5. BIFENDATE [Concomitant]
     Active Substance: BIFENDATE
     Indication: ANTIVIRAL PROPHYLAXIS
     Route: 048
     Dates: start: 20180504
  6. MEDI4736 [Suspect]
     Active Substance: DURVALUMAB
     Indication: NON-SMALL CELL LUNG CANCER
     Route: 042
     Dates: start: 20180404, end: 20180404
  7. EPHEDRA [Concomitant]
     Active Substance: EPHEDRA
     Indication: COUGH
     Route: 048
     Dates: start: 20180424
  8. MEDI4736 [Suspect]
     Active Substance: DURVALUMAB
     Indication: NON-SMALL CELL LUNG CANCER
     Route: 042
     Dates: start: 20180308, end: 20180308
  9. MEDI4736 [Suspect]
     Active Substance: DURVALUMAB
     Indication: NON-SMALL CELL LUNG CANCER
     Route: 042
     Dates: start: 20180504, end: 20180504

REACTIONS (1)
  - Cerebral infarction [Recovering/Resolving]

NARRATIVE: CASE EVENT DATE: 20180604
